FAERS Safety Report 10202456 (Version 1)
Quarter: 2014Q2

REPORT INFORMATION
  Report Type: Spontaneous
  Country: US (occurrence: US)
  Receive Date: 20140528
  Receipt Date: 20140528
  Transmission Date: 20141212
  Serious: Yes (Other)
  Sender: FDA-Public Use
  Company Number: US-ABBVIE-14P-163-1239960-00

PATIENT
  Age: 32 Year
  Sex: Female

DRUGS (1)
  1. HUMIRA [Suspect]
     Indication: CROHN^S DISEASE
     Dates: start: 2007, end: 201401

REACTIONS (4)
  - Arrested labour [Recovered/Resolved]
  - Discomfort [Recovered/Resolved]
  - Infertility female [Recovered/Resolved]
  - Crohn^s disease [Recovered/Resolved]
